FAERS Safety Report 5210541-5 (Version None)
Quarter: 2007Q1

REPORT INFORMATION
  Report Type: 
  Country: None (occurrence: None)
  Receive Date: 20070117
  Receipt Date: 20070112
  Transmission Date: 20070707
  Serious: Yes (Life-Threatening, Hospitalization)
  Sender: FDA-Public Use
  Company Number: JP-AVENTIS-200613814JP

PATIENT
  Age: 66 Year
  Sex: Male
  Weight: 58 kg

DRUGS (10)
  1. AMARYL [Suspect]
     Route: 048
     Dates: start: 20061129
  2. FERRUM [Concomitant]
     Indication: IRON DEFICIENCY ANAEMIA
     Route: 048
     Dates: start: 20060421
  3. ALLOPURINOL TAB [Concomitant]
     Indication: HYPERURICAEMIA
     Route: 048
     Dates: start: 20060418
  4. ONEALFA [Concomitant]
     Indication: OSTEOPOROSIS
     Route: 048
     Dates: start: 20060713
  5. AMOBAN [Concomitant]
     Indication: INSOMNIA
     Route: 048
     Dates: start: 20060425
  6. CALTAN [Concomitant]
     Indication: HYPERPHOSPHATAEMIA
     Route: 048
     Dates: start: 20060501
  7. ALINAMIN                           /00257802/ [Concomitant]
     Route: 048
     Dates: start: 20060424
  8. MYONAL                             /00287502/ [Concomitant]
     Route: 048
     Dates: start: 20060424
  9. MOBIC [Concomitant]
     Indication: TREMOR
     Route: 048
     Dates: start: 20061129
  10. CHOUTOUSAN [Concomitant]
     Indication: TREMOR
     Route: 048
     Dates: start: 20061129

REACTIONS (3)
  - DEPRESSED LEVEL OF CONSCIOUSNESS [None]
  - HYPOGLYCAEMIC COMA [None]
  - MEDICATION ERROR [None]
